FAERS Safety Report 19976770 (Version 2)
Quarter: 2021Q4

REPORT INFORMATION
  Report Type: Report from Study
  Country: CA (occurrence: CA)
  Receive Date: 20211020
  Receipt Date: 20211123
  Transmission Date: 20220303
  Serious: Yes (Hospitalization, Other)
  Sender: FDA-Public Use
  Company Number: CA-BAUSCH-BL-2021-020952

PATIENT

DRUGS (4)
  1. CONTRAVE [Suspect]
     Active Substance: BUPROPION HYDROCHLORIDE\NALTREXONE HYDROCHLORIDE
     Indication: Weight control
     Dosage: 90MG/8MG
     Route: 048
     Dates: start: 2021, end: 2021
  2. CONTRAVE [Suspect]
     Active Substance: BUPROPION HYDROCHLORIDE\NALTREXONE HYDROCHLORIDE
     Dosage: 90MG/8 MG, 2 TABLETS IN MORNING AND 2 TABLETS IN EVENING (2 DOSAGE FORMS,1 IN 12 HR)
     Route: 048
     Dates: start: 20210505, end: 2021
  3. PAXIL                              /00500401/ [Concomitant]
     Indication: Depression
     Dosage: 50 MG (50 MG,1 IN 1 D)
     Route: 048
  4. ECHINACEA                          /01323501/ [Concomitant]
     Indication: Phytotherapy
     Dosage: (1 IN 1 D)
     Route: 048

REACTIONS (14)
  - Neoplasm malignant [Unknown]
  - Dyspnoea [Not Recovered/Not Resolved]
  - Hunger [Not Recovered/Not Resolved]
  - Food craving [Not Recovered/Not Resolved]
  - Alveolar osteitis [Recovered/Resolved]
  - Swelling face [Recovering/Resolving]
  - Tooth socket haemorrhage [Unknown]
  - Toothache [Recovered/Resolved]
  - Dyspepsia [Not Recovered/Not Resolved]
  - Anxiety [Not Recovered/Not Resolved]
  - Diarrhoea [Not Recovered/Not Resolved]
  - Treatment noncompliance [Not Recovered/Not Resolved]
  - Therapeutic response unexpected [Unknown]
  - Labelled drug-food interaction medication error [Unknown]

NARRATIVE: CASE EVENT DATE: 20210101
